FAERS Safety Report 17218796 (Version 1)
Quarter: 2019Q4

REPORT INFORMATION
  Report Type: Spontaneous
  Country: US (occurrence: US)
  Receive Date: 20191231
  Receipt Date: 20191231
  Transmission Date: 20200122
  Serious: No
  Sender: FDA-Public Use
  Company Number: US-VERTEX PHARMACEUTICALS-2019-001718

PATIENT
  Sex: Female

DRUGS (14)
  1. FLORASTOR [LACTOBACILLUS ACIDOPHILUS] [Concomitant]
  2. URSODIOL. [Concomitant]
     Active Substance: URSODIOL
  3. AZITHROMYCIN ANHYDROUS. [Concomitant]
     Active Substance: AZITHROMYCIN ANHYDROUS
  4. ETHAMBUTOL [Concomitant]
     Active Substance: ETHAMBUTOL HYDROCHLORIDE
  5. RIFAMPIN. [Concomitant]
     Active Substance: RIFAMPIN
  6. NOVOLOG [Concomitant]
     Active Substance: INSULIN ASPART
  7. SIVEXTRO [Concomitant]
     Active Substance: TEDIZOLID PHOSPHATE
  8. BACTRIM [Concomitant]
     Active Substance: SULFAMETHOXAZOLE\TRIMETHOPRIM
  9. SYMDEKO [Suspect]
     Active Substance: IVACAFTOR\TEZACAFTOR
     Dosage: UNK
     Route: 048
     Dates: start: 2019, end: 20191218
  10. FEROSUL [Concomitant]
     Active Substance: FERROUS SULFATE
  11. SYMDEKO [Suspect]
     Active Substance: IVACAFTOR\TEZACAFTOR
     Indication: CYSTIC FIBROSIS
     Dosage: TEZACAFTOR 100 MG, IVACAFTOR 150 MGAM; IVACAFTOR 150 MG PM
     Route: 048
     Dates: start: 20180514
  12. SERTRALINE [Concomitant]
     Active Substance: SERTRALINE HYDROCHLORIDE
  13. SYMDEKO [Suspect]
     Active Substance: IVACAFTOR\TEZACAFTOR
     Dosage: TEZACAFTOR 100 MG, IVACAFTOR 150 MGAM; IVACAFTOR 150 MG PM
     Route: 048
     Dates: start: 20190802, end: 20190827
  14. LEVOFLOXACIN. [Concomitant]
     Active Substance: LEVOFLOXACIN

REACTIONS (5)
  - Cystic fibrosis [Not Recovered/Not Resolved]
  - Depression [Unknown]
  - Anxiety [Unknown]
  - Dizziness [Not Recovered/Not Resolved]
  - Dyspnoea [Not Recovered/Not Resolved]

NARRATIVE: CASE EVENT DATE: 2018
